FAERS Safety Report 12189819 (Version 1)
Quarter: 2016Q1

REPORT INFORMATION
  Report Type: Spontaneous
  Country: JP (occurrence: JP)
  Receive Date: 20160318
  Receipt Date: 20160318
  Transmission Date: 20160526
  Serious: Yes (Other)
  Sender: FDA-Public Use
  Company Number: JP-ROCHE-1728339

PATIENT
  Age: 57 Year
  Sex: Female
  Weight: 77 kg

DRUGS (6)
  1. SOVALDI [Suspect]
     Active Substance: SOFOSBUVIR
     Indication: CHRONIC HEPATITIS C
     Dosage: FRACTIONATION DOSE UNCERTAIN FREQUENCY AND DOSE INTERVAL UNCERTAINTY
     Route: 048
     Dates: start: 20160105
  2. EPADEL [Concomitant]
     Active Substance: ICOSAPENT
     Route: 065
  3. URSO [Concomitant]
     Active Substance: URSODIOL
     Route: 065
  4. COPEGUS [Suspect]
     Active Substance: RIBAVIRIN
     Indication: CHRONIC HEPATITIS C
     Dosage: FRACTIONATION DOSE UNCERTAIN FREQUENCY AND DOSE INTERVAL UNCERTAINTY
     Route: 048
     Dates: start: 20160105
  5. JUVELA (JAPAN) [Concomitant]
     Route: 065
  6. MECOBALAMIN [Concomitant]
     Active Substance: METHYLCOBALAMIN
     Route: 065
     Dates: start: 201510

REACTIONS (2)
  - Breast induration [Recovered/Resolved]
  - Postmenopausal haemorrhage [Recovered/Resolved]

NARRATIVE: CASE EVENT DATE: 20160108
